FAERS Safety Report 12086034 (Version 1)
Quarter: 2016Q1

REPORT INFORMATION
  Report Type: Spontaneous
  Country: GB (occurrence: GB)
  Receive Date: 20160217
  Receipt Date: 20160217
  Transmission Date: 20160526
  Serious: Yes (Death, Other)
  Sender: FDA-Public Use
  Company Number: GB-SEATTLE GENETICS-2015SGN01257

PATIENT

DRUGS (2)
  1. ADCETRIS [Suspect]
     Active Substance: BRENTUXIMAB VEDOTIN
     Indication: HODGKIN^S DISEASE
     Dosage: 180 MG, UNK
     Route: 042
     Dates: start: 20150427, end: 20150427
  2. ALLOPURINOL. [Concomitant]
     Active Substance: ALLOPURINOL
     Dosage: UNK

REACTIONS (9)
  - Drug ineffective [Unknown]
  - Lactic acidosis [Unknown]
  - Disease progression [Fatal]
  - Renal impairment [Unknown]
  - Renal tubular necrosis [Unknown]
  - Hepatic steatosis [Unknown]
  - Hyperglycaemia [Unknown]
  - Hepatic function abnormal [Unknown]
  - Myalgia [Unknown]
